FAERS Safety Report 12173672 (Version 1)
Quarter: 2016Q1

REPORT INFORMATION
  Report Type: Spontaneous
  Country: US (occurrence: None)
  Receive Date: 20160311
  Receipt Date: 20160311
  Transmission Date: 20160526
  Serious: Yes (Other)
  Sender: FDA-Public Use
  Company Number: None

PATIENT
  Age: 51 Year
  Sex: Female
  Weight: 68.04 kg

DRUGS (3)
  1. ULTRAM [Suspect]
     Active Substance: TRAMADOL HYDROCHLORIDE
     Indication: PROCEDURAL PAIN
     Dates: start: 20071013, end: 20071013
  2. SYNTHROID [Concomitant]
     Active Substance: LEVOTHYROXINE SODIUM
  3. FLINTSTONE CHEWABLE MULTIVITAMIN [Concomitant]

REACTIONS (3)
  - Feeling abnormal [None]
  - Decreased activity [None]
  - Anxiety [None]

NARRATIVE: CASE EVENT DATE: 20071013
